FAERS Safety Report 6719884-7 (Version None)
Quarter: 2010Q2

REPORT INFORMATION
  Report Type: 
  Country: None (occurrence: None)
  Receive Date: 20100510
  Receipt Date: 20100510
  Transmission Date: 20101027
  Serious: Yes (Hospitalization)
  Sender: FDA-Public Use
  Company Number: None

PATIENT
  Sex: Male
  Weight: 66.87 kg

DRUGS (2)
  1. CISPLATIN [Suspect]
     Dosage: 138 MG
     Dates: end: 20100325
  2. TAXOL [Suspect]
     Dosage: 405 MG
     Dates: end: 20100325

REACTIONS (4)
  - AUTONOMIC NEUROPATHY [None]
  - BLOOD POTASSIUM DECREASED [None]
  - ORTHOSTATIC HYPOTENSION [None]
  - STAPHYLOCOCCUS TEST POSITIVE [None]
